FAERS Safety Report 10695024 (Version 2)
Quarter: 2015Q1

REPORT INFORMATION
  Report Type: Spontaneous
  Country: US (occurrence: None)
  Receive Date: 20150105
  Receipt Date: 20150106
  Transmission Date: 20150721
  Serious: Yes (Other)
  Sender: FDA-Public Use
  Company Number: 2014-US-017076

PATIENT
  Age: 30 Year
  Sex: Female

DRUGS (1)
  1. XYREM [Suspect]
     Active Substance: SODIUM OXYBATE
     Indication: NARCOLEPSY
     Route: 048
     Dates: start: 201410, end: 201412

REACTIONS (5)
  - Complex regional pain syndrome [None]
  - Osteopenia [None]
  - Pain in extremity [None]
  - Insomnia [None]
  - Vitamin D decreased [None]

NARRATIVE: CASE EVENT DATE: 201412
